FAERS Safety Report 6904659-6 (Version None)
Quarter: 2010Q3

REPORT INFORMATION
  Report Type: 
  Country: None (occurrence: None)
  Receive Date: 20100804
  Receipt Date: 20090626
  Transmission Date: 20110219
  Serious: No
  Sender: FDA-Public Use
  Company Number: US-PFIZER INC-2009220791

PATIENT
  Age: 84 Year
  Sex: Male
  Weight: 77.098 kg

DRUGS (16)
  1. LYRICA [Suspect]
     Indication: BACK PAIN
     Dosage: 150 MG, 2X/DAY
     Dates: start: 20090301
  2. ULTRAM [Concomitant]
     Dosage: UNK
  3. CRESTOR [Concomitant]
     Dosage: UNK
  4. RANITIDINE [Concomitant]
     Dosage: UNK
  5. ALPRAZOLAM [Concomitant]
     Dosage: UNK
  6. LUMIGAN [Concomitant]
     Dosage: UNK
  7. MONTELUKAST SODIUM [Concomitant]
     Dosage: UNK
  8. ACETYLSALICYLIC ACID [Concomitant]
     Dosage: UNK
  9. MOTRIN [Concomitant]
     Dosage: UNK
  10. SITAGLIPTIN [Concomitant]
     Dosage: UNK
  11. ACTOS [Concomitant]
     Dosage: UNK
  12. AVALIDE [Concomitant]
     Dosage: UNK
  13. ZIAC [Concomitant]
     Dosage: UNK
  14. SPIRIVA [Concomitant]
     Dosage: UNK
  15. LEXAPRO [Concomitant]
     Dosage: UNK
  16. CORTICOSTEROIDS [Concomitant]
     Dosage: UNK
     Route: 008

REACTIONS (5)
  - AGITATION [None]
  - IRRITABILITY [None]
  - PAIN [None]
  - PSYCHOMOTOR HYPERACTIVITY [None]
  - SOMNOLENCE [None]
